FAERS Safety Report 25358950 (Version 1)
Quarter: 2025Q2

REPORT INFORMATION
  Report Type: Spontaneous
  Country: PL (occurrence: PL)
  Receive Date: 20250526
  Receipt Date: 20250526
  Transmission Date: 20250716
  Serious: Yes (Death)
  Sender: ROCHE
  Company Number: PL-ROCHE-10000293700

PATIENT
  Sex: Female

DRUGS (1)
  1. COLUMVI [Suspect]
     Active Substance: GLOFITAMAB-GXBM
     Indication: Diffuse large B-cell lymphoma
     Route: 065

REACTIONS (1)
  - Death [Fatal]
